FAERS Safety Report 4956074-2 (Version None)
Quarter: 2006Q1

REPORT INFORMATION
  Report Type: 
  Country: None (occurrence: None)
  Receive Date: 20060328
  Receipt Date: 20050803
  Transmission Date: 20060701
  Serious: Yes (Disabling)
  Sender: FDA-Public Use
  Company Number: GB-MERCK-0508GBR00041

PATIENT
  Age: 60 Year
  Sex: Female

DRUGS (2)
  1. COZAAR [Suspect]
     Indication: HYPERTENSION
     Route: 048
     Dates: start: 20031001, end: 20041201
  2. ALCOHOL [Suspect]
     Route: 065

REACTIONS (2)
  - HEPATIC STEATOSIS [None]
  - HEPATITIS CHRONIC ACTIVE [None]
